FAERS Safety Report 23513843 (Version 1)
Quarter: 2024Q1

REPORT INFORMATION
  Report Type: Spontaneous
  Country: US (occurrence: None)
  Receive Date: 20240212
  Receipt Date: 20240212
  Transmission Date: 20240410
  Serious: Yes (Death)
  Sender: FDA-Public Use
  Company Number: None

PATIENT
  Age: 78 Year
  Sex: Female

DRUGS (1)
  1. MYCOPHENOLATE MOFETIL [Suspect]
     Active Substance: MYCOPHENOLATE MOFETIL
     Indication: Chronic hepatitis
     Dosage: 500MG TWICE DAILY ORAL
     Route: 048
     Dates: start: 202005

REACTIONS (1)
  - Death [None]

NARRATIVE: CASE EVENT DATE: 20240208
